FAERS Safety Report 15499974 (Version 1)
Quarter: 2018Q4

REPORT INFORMATION
  Report Type: Spontaneous
  Country: CN (occurrence: CN)
  Receive Date: 20181015
  Receipt Date: 20181015
  Transmission Date: 20190205
  Serious: Yes (Other)
  Sender: FDA-Public Use
  Company Number: CN-PFIZER INC-2018406778

PATIENT
  Age: 69 Year
  Sex: Female
  Weight: 61 kg

DRUGS (3)
  1. SOLU-MEDROL [Suspect]
     Active Substance: METHYLPREDNISOLONE SODIUM SUCCINATE
     Indication: RESPIRATORY TRACT INFECTION
     Dosage: 40 MG, 1X/DAY
     Route: 041
     Dates: start: 20180825, end: 20180826
  2. AMBROXOL [Concomitant]
     Active Substance: AMBROXOL
     Dosage: UNK
  3. LI KE DUO [Concomitant]
     Active Substance: PIPERACILLIN SODIUM\SULBACTAM SODIUM
     Indication: INFECTION
     Dosage: 5 G, 2X/DAY
     Route: 041
     Dates: start: 20180823, end: 20180826

REACTIONS (3)
  - Pruritus [Recovered/Resolved]
  - Drug hypersensitivity [Unknown]
  - Rash [Recovered/Resolved]

NARRATIVE: CASE EVENT DATE: 20180825
